FAERS Safety Report 7626776-8 (Version None)
Quarter: 2011Q3

REPORT INFORMATION
  Report Type: 
  Country: None (occurrence: None)
  Receive Date: 20110721
  Receipt Date: 20110712
  Transmission Date: 20111222
  Serious: Yes (Death)
  Sender: FDA-Public Use
  Company Number: JP-UCBSA-034359

PATIENT
  Sex: Male

DRUGS (7)
  1. DEPAKENE [Concomitant]
     Route: 048
     Dates: start: 20110520, end: 20110529
  2. CELECOXIB [Concomitant]
     Route: 048
     Dates: start: 20101006, end: 20110529
  3. KEPPRA [Suspect]
     Indication: EPILEPSY
     Route: 048
     Dates: start: 20110509, end: 20110529
  4. NORVASC [Concomitant]
     Route: 048
     Dates: start: 20091014, end: 20110529
  5. OLMESARTAN MEDOXOMIL [Concomitant]
     Route: 048
     Dates: start: 20090902, end: 20110529
  6. DEPAKENE [Concomitant]
     Indication: EPILEPSY
     Route: 048
     Dates: start: 20100106, end: 20110519
  7. ASPIRIN [Concomitant]
     Route: 048
     Dates: start: 20090902, end: 20110529

REACTIONS (1)
  - DROWNING [None]
